FAERS Safety Report 8383354-3 (Version None)
Quarter: 2012Q2

REPORT INFORMATION
  Report Type: 
  Country: None (occurrence: None)
  Receive Date: 20120522
  Receipt Date: 20120510
  Transmission Date: 20120825
  Serious: Yes (Hospitalization)
  Sender: FDA-Public Use
  Company Number: 2012CP000045

PATIENT
  Age: 17 Year
  Sex: Female
  Weight: 58.5 kg

DRUGS (2)
  1. OFIRMEV [Suspect]
     Indication: PAIN
     Dosage: 900 MG;ONCE;IV
     Route: 042
     Dates: start: 20120403, end: 20120403
  2. ANESTHETICS [Concomitant]

REACTIONS (1)
  - MYOSITIS [None]
